FAERS Safety Report 12215793 (Version 1)
Quarter: 2016Q1

REPORT INFORMATION
  Report Type: Spontaneous
  Country: AU (occurrence: AU)
  Receive Date: 20160328
  Receipt Date: 20160328
  Transmission Date: 20160526
  Serious: Yes (Hospitalization, Other)
  Sender: FDA-Public Use
  Company Number: AU-APOTEX-2016AP007340

PATIENT
  Age: 33 Year
  Sex: Female

DRUGS (1)
  1. APO-CLARITHROMYCIN [Suspect]
     Active Substance: CLARITHROMYCIN
     Indication: ANTIBIOTIC THERAPY
     Dosage: UNK UNK, UNKNOWN
     Route: 065

REACTIONS (6)
  - Pseudomonal bacteraemia [Recovered/Resolved]
  - Pneumonia [Recovered/Resolved]
  - Toxic epidermal necrolysis [Recovered/Resolved]
  - Drug hypersensitivity [Recovered/Resolved]
  - Infection [Recovered/Resolved]
  - Staphylococcal bacteraemia [Recovered/Resolved]
